FAERS Safety Report 8780665 (Version 1)
Quarter: 2012Q4

REPORT INFORMATION
  Report Type: 
  Country: JP (occurrence: JP)
  Receive Date: 20120913
  Receipt Date: 20120913
  Transmission Date: 20130627
  Serious: Yes (Death, Other)
  Sender: FDA-Public Use
  Company Number: JP-ROCHE-1117624

PATIENT
  Age: 64 Year
  Sex: Male
  Weight: 59 kg

DRUGS (11)
  1. AVASTIN [Suspect]
     Indication: LUNG ADENOCARCINOMA METASTATIC
     Route: 041
     Dates: start: 20100511, end: 20100511
  2. PACLITAXEL [Concomitant]
     Indication: LUNG ADENOCARCINOMA METASTATIC
     Route: 041
     Dates: start: 20100511, end: 20100511
  3. PARAPLATIN [Concomitant]
     Indication: LUNG ADENOCARCINOMA METASTATIC
     Route: 041
     Dates: start: 20100511, end: 20100511
  4. AMARYL [Concomitant]
     Indication: DIABETES MELLITUS
     Route: 048
     Dates: end: 20120519
  5. RESTAMIN [Concomitant]
     Indication: PROPHYLAXIS
     Route: 048
     Dates: start: 20100511, end: 20100511
  6. MYSLEE [Concomitant]
     Indication: INSOMNIA
     Dosage: At the sleep loss
     Route: 048
     Dates: start: 20100511, end: 20100511
  7. MOHRUS TAPE [Concomitant]
     Route: 062
     Dates: start: 20100512, end: 20100520
  8. ALESION [Concomitant]
     Route: 048
     Dates: start: 20100513, end: 20100520
  9. BFLUID [Concomitant]
     Route: 041
     Dates: start: 20100514, end: 20100514
  10. CALONAL [Concomitant]
     Dosage: Irregularity and single use
     Route: 048
     Dates: start: 20100516, end: 20100520
  11. RINDERON-VG [Concomitant]
     Dosage: Irregularity
     Route: 062
     Dates: start: 20100517, end: 20100520

REACTIONS (5)
  - Haemoptysis [Fatal]
  - Asphyxia [Fatal]
  - Hypoxia [Fatal]
  - Bone marrow failure [Not Recovered/Not Resolved]
  - Febrile neutropenia [Not Recovered/Not Resolved]
